FAERS Safety Report 11653819 (Version 2)
Quarter: 2015Q4

REPORT INFORMATION
  Report Type: Spontaneous
  Country: US (occurrence: US)
  Receive Date: 20151022
  Receipt Date: 20151109
  Transmission Date: 20160304
  Serious: Yes (Other)
  Sender: FDA-Public Use
  Company Number: US-GLAXOSMITHKLINE-US2015150161

PATIENT
  Sex: Male

DRUGS (9)
  1. HYDROCODONE [Concomitant]
     Active Substance: HYDROCODONE
  2. LISINOPRIL. [Concomitant]
     Active Substance: LISINOPRIL
  3. MELOXICAM. [Concomitant]
     Active Substance: MELOXICAM
  4. SPIRIVA [Concomitant]
     Active Substance: TIOTROPIUM BROMIDE MONOHYDRATE
  5. MAGNESIUM [Concomitant]
     Active Substance: MAGNESIUM
  6. ADVAIR HFA [Suspect]
     Active Substance: FLUTICASONE PROPIONATE\SALMETEROL XINAFOATE
     Indication: CHRONIC OBSTRUCTIVE PULMONARY DISEASE
     Dosage: 230/21 MCG, U
     Route: 055
     Dates: start: 2014
  7. ADVAIR HFA [Suspect]
     Active Substance: FLUTICASONE PROPIONATE\SALMETEROL XINAFOATE
     Dosage: 115/21/MCG, 2 PUFF(S), BID
     Dates: start: 201507
  8. ADVAIR HFA [Suspect]
     Active Substance: FLUTICASONE PROPIONATE\SALMETEROL XINAFOATE
     Indication: ASTHMA
     Dosage: 2 PUFFS, BID
     Route: 055
     Dates: start: 201209
  9. VENTOLIN [Concomitant]
     Active Substance: ALBUTEROL SULFATE

REACTIONS (9)
  - Pulmonary fibrosis [Unknown]
  - Lung disorder [Unknown]
  - Fatigue [Not Recovered/Not Resolved]
  - Chronic obstructive pulmonary disease [Unknown]
  - Chest discomfort [Not Recovered/Not Resolved]
  - Hypersensitivity [Not Recovered/Not Resolved]
  - Total lung capacity decreased [Not Recovered/Not Resolved]
  - Dyspnoea [Not Recovered/Not Resolved]
  - Bronchial disorder [Not Recovered/Not Resolved]

NARRATIVE: CASE EVENT DATE: 2014
